FAERS Safety Report 20693005 (Version 2)
Quarter: 2022Q2

REPORT INFORMATION
  Report Type: Spontaneous
  Country: FR (occurrence: FR)
  Receive Date: 20220410
  Receipt Date: 20220513
  Transmission Date: 20220721
  Serious: Yes (Other)
  Sender: FDA-Public Use
  Company Number: FR-CELGENE-FRA-20220300076

PATIENT
  Age: 77 Year

DRUGS (9)
  1. LENALIDOMIDE [Suspect]
     Active Substance: LENALIDOMIDE
     Indication: Central nervous system lymphoma
     Dosage: QD, D1-D10, 21-DAY CYCLES (PHARMACEUTICAL DOSE FORM: 5)
     Route: 048
  2. LENALIDOMIDE [Suspect]
     Active Substance: LENALIDOMIDE
     Indication: Off label use
     Dosage: NO. OF INTERVALS: 28 DAYS
     Route: 048
  3. LENALIDOMIDE [Suspect]
     Active Substance: LENALIDOMIDE
     Dosage: 25 MG, QD, D1-D10
  4. LENALIDOMIDE [Suspect]
     Active Substance: LENALIDOMIDE
     Dosage: 20 MG/D D1-D21
     Route: 065
  5. IBRUTINIB [Suspect]
     Active Substance: IBRUTINIB
     Indication: Central nervous system lymphoma
     Dosage: QD, CONTINUOUSLY, 21-DAY CYCLES
     Route: 048
  6. IBRUTINIB [Suspect]
     Active Substance: IBRUTINIB
     Dosage: 560 MG, QD 560 MG/D, CONTINUOUSLY (28-DAY CYCLES)
     Route: 065
  7. RITUXIMAB [Suspect]
     Active Substance: RITUXIMAB
     Indication: Central nervous system lymphoma
     Dosage: 21-DAY CYCLES (INTERVAL 21 DAYS)
     Route: 065
  8. RITUXIMAB [Suspect]
     Active Substance: RITUXIMAB
     Dosage: 375 MG/M2, IN 21 DAYS 375 MG/M2, CONTINUOUSLY (28-DAY CYCLES)
     Route: 065
  9. RITUXIMAB [Suspect]
     Active Substance: RITUXIMAB
     Dosage: 375 MICROGRAM/SQ. METER
     Route: 065

REACTIONS (3)
  - Cerebral aspergillosis [Unknown]
  - Malignant neoplasm progression [Unknown]
  - Product use in unapproved indication [Unknown]
